FAERS Safety Report 21544191 (Version 1)
Quarter: 2022Q4

REPORT INFORMATION
  Report Type: Spontaneous
  Country: US (occurrence: US)
  Receive Date: 20221102
  Receipt Date: 20221102
  Transmission Date: 20230113
  Serious: No
  Sender: FDA-Public Use
  Company Number: US-MYOVANT SCIENCES GMBH-2022MYSCI0800005

PATIENT
  Age: 71 Year
  Sex: Male

DRUGS (1)
  1. ORGOVYX [Suspect]
     Active Substance: RELUGOLIX
     Indication: Prostate cancer
     Dosage: UNK
     Route: 065
     Dates: end: 20220731

REACTIONS (1)
  - Therapy interrupted [Unknown]

NARRATIVE: CASE EVENT DATE: 20220801
